FAERS Safety Report 10360878 (Version 2)
Quarter: 2014Q3

REPORT INFORMATION
  Report Type: Spontaneous
  Country: US (occurrence: US)
  Receive Date: 20140804
  Receipt Date: 20140829
  Transmission Date: 20150326
  Serious: No
  Sender: FDA-Public Use
  Company Number: US-TEVA-499215USA

PATIENT
  Age: 30 Year
  Sex: Female
  Weight: 68.1 kg

DRUGS (1)
  1. PARAGARD T380A [Suspect]
     Active Substance: COPPER
     Indication: CONTRACEPTION
     Route: 015
     Dates: start: 20140103, end: 20140702

REACTIONS (5)
  - Vaginal discharge [Unknown]
  - Device expulsion [Recovered/Resolved]
  - Vulvovaginitis [Unknown]
  - Pelvic pain [Unknown]
  - Vaginal infection [Unknown]

NARRATIVE: CASE EVENT DATE: 20140214
